FAERS Safety Report 20331749 (Version 1)
Quarter: 2022Q1

REPORT INFORMATION
  Report Type: Spontaneous
  Country: CA (occurrence: CA)
  Receive Date: 20220113
  Receipt Date: 20220113
  Transmission Date: 20220423
  Serious: Yes (Hospitalization, Other)
  Sender: FDA-Public Use
  Company Number: CA-TEVA-2022-CA-1998124

PATIENT
  Age: 79 Year
  Sex: Male

DRUGS (3)
  1. SIMVASTATIN [Interacting]
     Active Substance: SIMVASTATIN
     Indication: Hypercholesterolaemia
     Dosage: 40 MILLIGRAM DAILY;
     Route: 065
  2. COLCHICINE [Interacting]
     Active Substance: COLCHICINE
     Indication: Gout
     Route: 065
  3. COLCHICINE [Interacting]
     Active Substance: COLCHICINE
     Dosage: .6 MILLIGRAM DAILY;
     Route: 048

REACTIONS (4)
  - Musculoskeletal toxicity [Unknown]
  - Renal failure [Unknown]
  - Rhabdomyolysis [Unknown]
  - Drug interaction [Unknown]
